FAERS Safety Report 4502367-2 (Version None)
Quarter: 2004Q4

REPORT INFORMATION
  Report Type: 
  Country: None (occurrence: None)
  Receive Date: 20041116
  Receipt Date: 20040823
  Transmission Date: 20050328
  Serious: Yes (Life-Threatening)
  Sender: FDA-Public Use
  Company Number: PHHO2004CA11926

PATIENT
  Age: 21 Year
  Sex: Male

DRUGS (4)
  1. CLOZARIL [Suspect]
     Indication: SCHIZOPHRENIA
     Dosage: 550 MG, QD
     Route: 048
     Dates: start: 20031023, end: 20040818
  2. RISPERDAL [Suspect]
     Dates: start: 20040805, end: 20040818
  3. VALPROIC ACID [Concomitant]
  4. ATIVAN [Concomitant]

REACTIONS (5)
  - BLOOD CREATINE PHOSPHOKINASE INCREASED [None]
  - DEHYDRATION [None]
  - MUSCLE RIGIDITY [None]
  - NEUROLEPTIC MALIGNANT SYNDROME [None]
  - TACHYCARDIA [None]
